FAERS Safety Report 5047279-3 (Version None)
Quarter: 2006Q3

REPORT INFORMATION
  Report Type: 
  Country: None (occurrence: None)
  Receive Date: 20060711
  Receipt Date: 20060613
  Transmission Date: 20061208
  Serious: Yes (Other)
  Sender: FDA-Public Use
  Company Number: 2006AP02772

PATIENT
  Age: 51 Year
  Sex: Female

DRUGS (5)
  1. LOSEC [Suspect]
     Indication: BARRETT'S OESOPHAGUS
     Route: 048
  2. NEXIUM [Suspect]
     Indication: BARRETT'S OESOPHAGUS
     Route: 048
  3. CALCIUM SUPPLEMENT [Concomitant]
  4. TELMISARTAN [Concomitant]
  5. RANITIDINE [Concomitant]
     Indication: REFLUX OESOPHAGITIS

REACTIONS (5)
  - HYPOCALCAEMIA [None]
  - HYPOMAGNESAEMIA [None]
  - HYPOPARATHYROIDISM [None]
  - MUSCLE SPASMS [None]
  - TETANY [None]
